FAERS Safety Report 5305193-X (Version None)
Quarter: 2007Q2

REPORT INFORMATION
  Report Type: 
  Country: None (occurrence: None)
  Receive Date: 20070417
  Receipt Date: 20070404
  Transmission Date: 20071010
  Serious: Yes (Other)
  Sender: FDA-Public Use
  Company Number: 2007BI006622

PATIENT
  Age: 64 Year
  Sex: Male

DRUGS (29)
  1. NATALIZUMAB [Suspect]
     Indication: MULTIPLE SCLEROSIS
     Dosage: 300 MG; QM; IV
     Route: 042
     Dates: start: 20070110, end: 20070220
  2. WELLBUTRIN [Concomitant]
  3. ARICEPT [Concomitant]
  4. NAMENDA [Concomitant]
  5. BIPAP [Concomitant]
  6. CRESTOR [Concomitant]
  7. SINGULAIR [Concomitant]
  8. ALLEGRA D 24 HOUR [Concomitant]
  9. PATANOL [Concomitant]
  10. CIALIS [Concomitant]
  11. CAVERJECT [Concomitant]
  12. ALLERGY SHOTS [Concomitant]
  13. AFRIN [Concomitant]
  14. ADVIL [Concomitant]
  15. MUCINEX [Concomitant]
  16. TYLENOL [Concomitant]
  17. POLICOSANOL [Concomitant]
  18. GUGGUL [Concomitant]
  19. FISH OIL [Concomitant]
  20. COENZYME Q10 [Concomitant]
  21. PROSTATE SUPPLEMENT [Concomitant]
  22. ACETYLCYSTEINE [Concomitant]
  23. TURMERIC [Concomitant]
  24. QUERCITIN [Concomitant]
  25. BROMELAIN [Concomitant]
  26. CLARINEX [Concomitant]
  27. ADVAIR DISKUS 100/50 [Concomitant]
  28. TRAMADOL HCL [Concomitant]
  29. PREVACID [Concomitant]

REACTIONS (1)
  - B-CELL LYMPHOMA [None]
